FAERS Safety Report 7691677-6 (Version None)
Quarter: 2011Q3

REPORT INFORMATION
  Report Type: 
  Country: None (occurrence: None)
  Receive Date: 20110818
  Receipt Date: 20110802
  Transmission Date: 20111222
  Serious: Yes (Hospitalization)
  Sender: FDA-Public Use
  Company Number: US-GLAXOSMITHKLINE-A0759922A

PATIENT
  Age: 53 Year
  Sex: Male
  Weight: 122.7 kg

DRUGS (6)
  1. GLYBURIDE [Concomitant]
  2. ZOLOFT [Concomitant]
  3. ALTACE [Concomitant]
  4. AVANDIA [Suspect]
     Indication: TYPE 2 DIABETES MELLITUS
     Route: 048
     Dates: start: 20030731, end: 20070726
  5. DIABETA [Concomitant]
  6. ATENOLOL [Concomitant]

REACTIONS (3)
  - CORONARY ARTERY DISEASE [None]
  - MYOCARDIAL INFARCTION [None]
  - ANGINA UNSTABLE [None]
